FAERS Safety Report 10304943 (Version 1)
Quarter: 2014Q3

REPORT INFORMATION
  Report Type: Spontaneous
  Country: US (occurrence: None)
  Receive Date: 20140711
  Receipt Date: 20140711
  Transmission Date: 20150326
  Serious: Yes (Hospitalization)
  Sender: FDA-Public Use
  Company Number: None

PATIENT
  Age: 28 Year
  Sex: Female
  Weight: 103.42 kg

DRUGS (1)
  1. PREVIFEM [Suspect]
     Active Substance: ETHINYL ESTRADIOL\NORGESTIMATE
     Indication: AMENORRHOEA
     Route: 048
     Dates: start: 20131001, end: 20140419

REACTIONS (3)
  - Arthralgia [None]
  - Pain in extremity [None]
  - Pulmonary embolism [None]

NARRATIVE: CASE EVENT DATE: 20140419
